FAERS Safety Report 15741963 (Version 2)
Quarter: 2019Q2

REPORT INFORMATION
  Report Type: Spontaneous
  Country: JP (occurrence: JP)
  Receive Date: 20181219
  Receipt Date: 20190626
  Transmission Date: 20190711
  Serious: Yes (Death)
  Sender: FDA-Public Use
  Company Number: JP-ELI_LILLY_AND_COMPANY-JP201812007325

PATIENT
  Age: 72 Year
  Sex: Female
  Weight: 37 kg

DRUGS (5)
  1. ERBITUX [Suspect]
     Active Substance: CETUXIMAB
     Dosage: 250 MG/M2, UNKNOWN
     Route: 041
     Dates: start: 20181121
  2. 5 FU [Concomitant]
     Active Substance: FLUOROURACIL
     Dosage: UNK
     Dates: start: 20181117
  3. CISPLATIN. [Concomitant]
     Active Substance: CISPLATIN
     Indication: GINGIVAL CANCER
     Dosage: UNK
     Dates: start: 20181114, end: 20181114
  4. 5 FU [Concomitant]
     Active Substance: FLUOROURACIL
     Indication: GINGIVAL CANCER
     Dosage: UNK
     Dates: start: 20181114
  5. ERBITUX [Suspect]
     Active Substance: CETUXIMAB
     Indication: GINGIVAL CANCER
     Dosage: 400 MG/M2, UNKNOWN
     Route: 041
     Dates: start: 20181114

REACTIONS (2)
  - Interstitial lung disease [Fatal]
  - Respiratory failure [Fatal]

NARRATIVE: CASE EVENT DATE: 20181203
